FAERS Safety Report 24654291 (Version 1)
Quarter: 2024Q4

REPORT INFORMATION
  Report Type: Spontaneous
  Country: US (occurrence: US)
  Receive Date: 20241122
  Receipt Date: 20241122
  Transmission Date: 20250114
  Serious: No
  Sender: GALDERMA
  Company Number: US-GALDERMA-US2024015418

PATIENT

DRUGS (38)
  1. NEMLUVIO [Suspect]
     Active Substance: NEMOLIZUMAB-ILTO
     Indication: Neurodermatitis
     Dosage: 60 MILLIGRAMS, INJECTED IN THIGH
     Route: 058
     Dates: start: 20241016
  2. AMLODIPINE [Concomitant]
     Active Substance: AMLODIPINE BESYLATE
     Indication: Blood pressure increased
     Dosage: 5 MILLIGRAM, ONCE DAILY IN THE MORNING
     Route: 065
     Dates: start: 2015
  3. LISINOPRIL [Concomitant]
     Active Substance: LISINOPRIL
     Indication: Blood pressure increased
     Dosage: 40 MILLIGRAM, ONCE DAILY IN THE MORNING
     Route: 065
     Dates: start: 2009
  4. VENLAFAXINE HYDROCHLORIDE [Concomitant]
     Active Substance: VENLAFAXINE HYDROCHLORIDE
     Indication: Depression
     Dosage: 150 MILLIGRAMS, ONCE DAILY IN THE MORNING
     Route: 065
     Dates: start: 2000
  5. VENLAFAXINE HYDROCHLORIDE [Concomitant]
     Active Substance: VENLAFAXINE HYDROCHLORIDE
     Dosage: 150 MILLIGRAMS, ONCE DAILY IN THE EVENING
     Route: 065
     Dates: start: 2023
  6. MONTELUKAST SODIUM [Concomitant]
     Active Substance: MONTELUKAST SODIUM
     Indication: Asthma
     Dosage: 10 MILLIGRAM, ONCE DAILY IN THE EVENING
     Route: 065
     Dates: start: 2000
  7. CETIRIZINE HYDROCHLORIDE [Concomitant]
     Active Substance: CETIRIZINE HYDROCHLORIDE
     Indication: Rhinitis allergic
     Dosage: 10 MILLIGRAM, ONCE DAILY IN THE MORNING
     Route: 065
     Dates: start: 2000
  8. HYDROCHLOROTHIAZIDE [Concomitant]
     Active Substance: HYDROCHLOROTHIAZIDE
     Indication: Joint swelling
     Dosage: 25 MILLIGRAM, ONCE DAILY IN THE MORNING
     Route: 065
     Dates: start: 2017
  9. VASCEPA [Concomitant]
     Active Substance: ICOSAPENT ETHYL
     Indication: Blood cholesterol increased
     Dosage: 1 GRAM, FOUR TIMES A DAY IN THE MORNING AND THE EVENING
     Route: 065
     Dates: start: 2018
  10. DULERA [Concomitant]
     Active Substance: FORMOTEROL FUMARATE DIHYDRATE\MOMETASONE FUROATE
     Indication: Asthma
     Dosage: 200 MICROGRAM, 2 PUFFS 2 TIMES A DAY
     Route: 065
     Dates: start: 2024
  11. DULERA [Concomitant]
     Active Substance: FORMOTEROL FUMARATE DIHYDRATE\MOMETASONE FUROATE
     Dosage: 200 MICROGRAM, 2 PUFFS 2 TIMES A DAY
     Route: 065
     Dates: start: 2024
  12. QNASL [Concomitant]
     Active Substance: BECLOMETHASONE DIPROPIONATE
     Indication: Asthma
     Dosage: 80 MICROGRAM, ONCE DAILY PER NOSTRIL
     Route: 065
     Dates: start: 2014
  13. XOLAIR [Concomitant]
     Active Substance: OMALIZUMAB
     Indication: Rhinitis allergic
     Dosage: 150 MILLIGRAM, TWO TIMES EVERY TWO WEEKS
     Route: 058
     Dates: start: 2014
  14. ESTRADIOL [Concomitant]
     Active Substance: ESTRADIOL
     Indication: Blood oestrogen decreased
     Dosage: 75 MILLIGRAMS, CONTINUOUSLY FOR 3 MONTHS
     Dates: start: 2019
  15. TESTOSTERONE [Concomitant]
     Active Substance: TESTOSTERONE
     Indication: Blood testosterone decreased
     Dosage: 75 MILLIGRAMS, CONTINUOUSLY FOR 3 MONTHS
     Dates: start: 2019
  16. ADULT MULTIVITAMIN [Concomitant]
     Indication: Supplementation therapy
     Dosage: UNK, ONCE DAILY IN THE MORNING
     Route: 048
     Dates: start: 2000
  17. VITAMIN C [Concomitant]
     Active Substance: ASCORBIC ACID
     Indication: Supplementation therapy
     Dosage: 1000 MILLIGRAM, ONCE DAILY IN THE MORNING
     Route: 048
     Dates: start: 2000
  18. CALCIUM WITH D3 [Concomitant]
     Indication: Supplementation therapy
     Dosage: 600 MG AND 400 MG, TWO TIME DAILY
     Route: 065
     Dates: start: 2000
  19. CRANBERRY [ASCORBIC ACID;TOCOPHEROL;VACCINIUM MACROCARPON] [Concomitant]
     Indication: Urinary tract infection
     Dosage: 465 MILLIGRAM, TWO TIMES A DAY IN THE MORNING AND EVENING
     Dates: start: 2010
  20. FOLIC ACID [Concomitant]
     Active Substance: FOLIC ACID
     Indication: Supplementation therapy
     Dosage: 800 MICROGRAM, TWO TIMES A DAY IN THE MORNING AND EVENING
     Dates: start: 2017
  21. POTASSIUM CITRATE [Concomitant]
     Active Substance: POTASSIUM CITRATE
     Indication: Supplementation therapy
     Dosage: 99 MILLIGRAM, ONCE DAILY IN THE MORNING
     Dates: start: 2017
  22. COENZYME Q10 [Concomitant]
     Active Substance: DIETARY SUPPLEMENT\UBIDECARENONE
     Indication: Supplementation therapy
     Dosage: 100 MILLIGRAM, ONCE DAILY IN THE MORNING
     Dates: start: 2000
  23. ALIGN [Concomitant]
     Active Substance: BIFIDOBACTERIUM LONGUM SUBSP. INFANTIS
     Indication: Probiotic therapy
     Dosage: 4 BILLON CULTURES, ONCE DAILY IN THE MORNING
     Dates: start: 2018
  24. VIVISCAL PROFESSIONAL [Concomitant]
     Indication: Supplementation therapy
     Dosage: 475 MILLIGRAM, TWO TIMES A DAY IN THE MORNING AND EVENING
     Dates: start: 2019
  25. HYDROXYZINE HYDROCHLORIDE [Concomitant]
     Active Substance: HYDROXYZINE HYDROCHLORIDE
     Indication: Urticaria
     Dosage: 10 MILLIGRAM
     Dates: start: 2021
  26. HYDROXYZINE HYDROCHLORIDE [Concomitant]
     Active Substance: HYDROXYZINE HYDROCHLORIDE
     Indication: Rash
  27. HYOSCYAMINE [Concomitant]
     Active Substance: HYOSCYAMINE
     Indication: Irritable bowel syndrome
     Dosage: 0.125 MILLIGRAM, AS NEEDED
     Dates: start: 2018
  28. TRAZODONE [Concomitant]
     Active Substance: TRAZODONE HYDROCHLORIDE
     Indication: Insomnia
     Dosage: 50 MILLIGRAM, AS NEEDED
     Dates: start: 2014
  29. DIAZEPAM [Concomitant]
     Active Substance: DIAZEPAM
     Indication: Anxiety
     Dosage: 5 MILLIGRAM, AS NEEDED
     Dates: start: 2014
  30. DIAZEPAM [Concomitant]
     Active Substance: DIAZEPAM
     Dosage: 5 MILLIGRAM, AS NEEDED
     Dates: start: 2023
  31. EPIPEN [Concomitant]
     Active Substance: EPINEPHRINE
     Indication: Anaphylactic reaction
     Dosage: 0.3 MILLIGRAM, AS NEEDED
     Dates: start: 2000
  32. ALBUTEROL SULFATE [Concomitant]
     Active Substance: ALBUTEROL SULFATE
     Indication: Asthma
     Dosage: 90 MICROGRAM, AS NEEDED
     Dates: start: 2000
  33. GABAPENTIN [Concomitant]
     Active Substance: GABAPENTIN
     Indication: Brachioradial pruritus
     Dosage: 300 MICROGRAM, ONCE DAILY IN THE MORNING
     Dates: start: 2022
  34. RISPERIDONE [Concomitant]
     Active Substance: RISPERIDONE
     Indication: Depression
     Dosage: 1 MILLIGRAM, ONCE DAILY IN THE EVENING
     Dates: start: 2023
  35. MAGNESIUM [Concomitant]
     Active Substance: MAGNESIUM
     Indication: Supplementation therapy
     Dosage: 100 MILLIGRAM, ONCE DAILY IN THE MORNING
     Dates: start: 2020
  36. NIACIN [Concomitant]
     Active Substance: NIACIN
     Indication: Supplementation therapy
     Dosage: 25 MILLIGRAM, ONCE DAILY IN THE MORNING
     Dates: start: 2020
  37. VITAMIN B12 [Concomitant]
     Active Substance: CYANOCOBALAMIN
     Indication: Supplementation therapy
     Dosage: 1000 MICROGRAM, ONCE DAILY IN THE MORNING
     Dates: start: 2017
  38. VITAMIN D3 [Concomitant]
     Active Substance: CHOLECALCIFEROL
     Indication: Supplementation therapy
     Dosage: 2000 INTERNATIONAL UNIT, ONCE DAILY IN THE MORNING

REACTIONS (2)
  - Incorrect dose administered [Recovered/Resolved]
  - Device leakage [Recovered/Resolved]

NARRATIVE: CASE EVENT DATE: 20241016
